FAERS Safety Report 9055133 (Version 2)
Quarter: 2013Q1

REPORT INFORMATION
  Report Type: Spontaneous
  Country: US (occurrence: US)
  Receive Date: 20130206
  Receipt Date: 20130301
  Transmission Date: 20140127
  Serious: Yes (Other)
  Sender: FDA-Public Use
  Company Number: US-ASTELLAS-2012US010008

PATIENT
  Sex: Male

DRUGS (2)
  1. PROGRAF [Suspect]
     Indication: LIVER TRANSPLANT
     Dosage: 1 MG IN THE MORNING AND 0.5 MG IN THE EVENING
     Route: 048
     Dates: start: 20070719
  2. BACTRIM [Concomitant]
     Indication: URINARY TRACT INFECTION
     Dosage: 200/40MG/5ML, UNK
     Route: 065
     Dates: start: 200707

REACTIONS (4)
  - Dry throat [Unknown]
  - Musculoskeletal stiffness [Unknown]
  - Viral skin infection [Unknown]
  - Urticaria [Not Recovered/Not Resolved]
